FAERS Safety Report 6428492-7 (Version None)
Quarter: 2009Q4

REPORT INFORMATION
  Report Type: 
  Country: None (occurrence: None)
  Receive Date: 20091102
  Receipt Date: 20091023
  Transmission Date: 20100525
  Serious: Yes (Death, Hospitalization)
  Sender: FDA-Public Use
  Company Number: GXKR2009GB11648

PATIENT
  Age: 50 Year
  Sex: Male

DRUGS (3)
  1. BENDROFLUMETHIAZIDE       (NGX) (BENDROFLUMETHIAZIDE) UNKNOWN [Suspect]
  2. CLOMIPRAMINE HCL [Suspect]
  3. CHLORIAZEPOXIDE (CHLORDIAZEPOXIDE) [Concomitant]

REACTIONS (11)
  - ALCOHOL WITHDRAWAL SYNDROME [None]
  - CONSTIPATION [None]
  - DISORIENTATION [None]
  - DYSARTHRIA [None]
  - DYSPHAGIA [None]
  - HYPERHIDROSIS [None]
  - HYPONATRAEMIA [None]
  - OSMOTIC DEMYELINATION SYNDROME [None]
  - PYREXIA [None]
  - SOMNOLENCE [None]
  - TREMOR [None]
